FAERS Safety Report 19754892 (Version 2)
Quarter: 2021Q3

REPORT INFORMATION
  Report Type: Other
  Country: CA (occurrence: CA)
  Receive Date: 20210827
  Receipt Date: 20210912
  Transmission Date: 20211014
  Serious: Yes (Hospitalization, Other)
  Sender: FDA-Public Use
  Company Number: CA-ROCHE-2898867

PATIENT
  Age: 59 Year
  Sex: Female

DRUGS (9)
  1. ESTROGEN [Concomitant]
     Active Substance: ESTROGENS
  2. XOLAIR [Suspect]
     Active Substance: OMALIZUMAB
     Route: 058
  3. XOLAIR [Suspect]
     Active Substance: OMALIZUMAB
     Indication: CHRONIC SPONTANEOUS URTICARIA
     Route: 058
     Dates: start: 20200917
  4. XOLAIR [Suspect]
     Active Substance: OMALIZUMAB
     Route: 058
  5. NIACIN. [Suspect]
     Active Substance: NIACIN
     Indication: PRODUCT USED FOR UNKNOWN INDICATION
     Route: 065
  6. HUMIRA [Concomitant]
     Active Substance: ADALIMUMAB
  7. GABAPENTIN. [Concomitant]
     Active Substance: GABAPENTIN
  8. XOLAIR [Suspect]
     Active Substance: OMALIZUMAB
     Route: 065
     Dates: start: 20200929
  9. TRAZODONE [Concomitant]
     Active Substance: TRAZODONE HYDROCHLORIDE

REACTIONS (5)
  - Boredom [Unknown]
  - Myocardial infarction [Recovered/Resolved]
  - Anaphylactic reaction [Unknown]
  - Overdose [Unknown]
  - Coronary artery dissection [Recovered/Resolved]

NARRATIVE: CASE EVENT DATE: 20201109
